FAERS Safety Report 8801701 (Version 3)
Quarter: 2012Q4

REPORT INFORMATION
  Report Type: 
  Country: GB (occurrence: GB)
  Receive Date: 20120921
  Receipt Date: 20121210
  Transmission Date: 20130627
  Serious: Yes (Other)
  Sender: FDA-Public Use
  Company Number: GB-009507513-1209GBR006624

PATIENT
  Age: 24 Year
  Sex: Female

DRUGS (2)
  1. IMPLANON [Suspect]
     Indication: CONTRACEPTION
     Dosage: 1 DF, UNK
     Route: 059
     Dates: start: 20101021, end: 20120911
  2. IMPLANON [Suspect]
     Dosage: UNK
     Route: 059
     Dates: end: 20101021

REACTIONS (5)
  - Abortion spontaneous [Recovered/Resolved]
  - Menorrhagia [Unknown]
  - Abdominal pain [Unknown]
  - Unintended pregnancy [Recovered/Resolved]
  - Metrorrhagia [Unknown]
